FAERS Safety Report 20832671 (Version 1)
Quarter: 2022Q2

REPORT INFORMATION
  Report Type: Spontaneous
  Country: US (occurrence: US)
  Receive Date: 20220516
  Receipt Date: 20220516
  Transmission Date: 20220720
  Serious: No
  Sender: FDA-Public Use
  Company Number: US-TOLMAR, INC.-22US033694

PATIENT
  Sex: Male

DRUGS (1)
  1. ELIGARD [Suspect]
     Active Substance: LEUPROLIDE ACETATE
     Indication: Prostate cancer
     Dosage: 22.5 MILLIGRAM, Q 3 MONTH
     Route: 058
     Dates: start: 2021

REACTIONS (2)
  - Injection site mass [Not Recovered/Not Resolved]
  - Product administered by wrong person [Unknown]

NARRATIVE: CASE EVENT DATE: 20210101
